FAERS Safety Report 16367597 (Version 3)
Quarter: 2019Q2

REPORT INFORMATION
  Report Type: Spontaneous
  Country: US (occurrence: US)
  Receive Date: 20190529
  Receipt Date: 20190606
  Transmission Date: 20190711
  Serious: No
  Sender: FDA-Public Use
  Company Number: US-PFIZER INC-2019225014

PATIENT
  Age: 5 Year
  Sex: Male
  Weight: 16.78 kg

DRUGS (3)
  1. MOTRIN [Concomitant]
     Active Substance: IBUPROFEN
     Indication: EAR PAIN
     Dosage: UNK UNK, AS NEEDED (100 MG/5 ML EVERY 6 TO 8 HOURS BY MOUTH)/(5 ML EVERY 6 OR 7 HOURS AS NEEDED)
     Route: 048
     Dates: start: 20190520
  2. AZITHROMYCIN ANHYDROUS. [Suspect]
     Active Substance: AZITHROMYCIN ANHYDROUS
     Indication: EAR INFECTION
     Dosage: 5 ML, 1X/DAY
     Route: 048
     Dates: start: 20190521
  3. AZITHROMYCIN ANHYDROUS. [Suspect]
     Active Substance: AZITHROMYCIN ANHYDROUS
     Dosage: 2.5 ML, 1X/DAY
     Route: 048

REACTIONS (2)
  - Poor quality sleep [Unknown]
  - Pruritus [Recovered/Resolved]

NARRATIVE: CASE EVENT DATE: 20190521
